FAERS Safety Report 6197825-1 (Version None)
Quarter: 2009Q2

REPORT INFORMATION
  Report Type: 
  Country: None (occurrence: None)
  Receive Date: 20090521
  Receipt Date: 20090506
  Transmission Date: 20091009
  Serious: Yes (Other)
  Sender: FDA-Public Use
  Company Number: CA-GENENTECH-282085

PATIENT
  Sex: Female

DRUGS (1)
  1. AVASTIN [Suspect]
     Indication: ASTROCYTOMA
     Dosage: 360 MG, Q2W
     Route: 042
     Dates: start: 20080904, end: 20090408

REACTIONS (2)
  - CONVULSION [None]
  - DISEASE PROGRESSION [None]
